FAERS Safety Report 5767093-0 (Version None)
Quarter: 2008Q2

REPORT INFORMATION
  Report Type: 
  Country: None (occurrence: None)
  Receive Date: 20080606
  Receipt Date: 20080602
  Transmission Date: 20081010
  Serious: Yes (Death)
  Sender: FDA-Public Use
  Company Number: 2008-01935

PATIENT
  Age: 65 Year
  Sex: 0

DRUGS (4)
  1. VELCADE [Suspect]
     Indication: MULTIPLE MYELOMA
     Dosage: 2 MG/M2
     Dates: start: 20080407, end: 20080407
  2. THALIDOMIDE [Concomitant]
  3. DEXAMETHASONE TAB [Concomitant]
  4. CYCLOPHOSPHAMIDE [Concomitant]

REACTIONS (4)
  - AMYLOIDOSIS [None]
  - ARRHYTHMIA [None]
  - DISEASE COMPLICATION [None]
  - MYOCARDIAL INFARCTION [None]
